FAERS Safety Report 6508970-2 (Version None)
Quarter: 2009Q4

REPORT INFORMATION
  Report Type: 
  Country: None (occurrence: None)
  Receive Date: 20091221
  Receipt Date: 20090901
  Transmission Date: 20100525
  Serious: No
  Sender: FDA-Public Use
  Company Number: US-ASTRAZENECA-2009SE11182

PATIENT
  Sex: Male

DRUGS (6)
  1. CRESTOR [Suspect]
     Indication: BLOOD CHOLESTEROL INCREASED
     Route: 048
     Dates: start: 20060101
  2. OMEPRAZOLE [Concomitant]
  3. CLONAZEPAM [Concomitant]
  4. ZOLOFT [Concomitant]
  5. BABY ASPIRIN [Concomitant]
  6. NORVASC [Concomitant]

REACTIONS (1)
  - EYE PAIN [None]
